FAERS Safety Report 24570009 (Version 3)
Quarter: 2024Q4

REPORT INFORMATION
  Report Type: Spontaneous
  Country: US (occurrence: US)
  Receive Date: 20241031
  Receipt Date: 20241127
  Transmission Date: 20250114
  Serious: No
  Sender: PFIZER
  Company Number: US-PFIZER INC-202400289979

PATIENT
  Age: 73 Year
  Sex: Female
  Weight: 72.562 kg

DRUGS (2)
  1. LEVOXYL [Suspect]
     Active Substance: LEVOTHYROXINE SODIUM
     Indication: Thyroid disorder
     Dosage: 0.125 MG, DAILY (TAKES EVERY MORNING)
     Route: 048
     Dates: start: 1991
  2. METFORMIN HYDROCHLORIDE [Concomitant]
     Active Substance: METFORMIN HYDROCHLORIDE
     Indication: Type 2 diabetes mellitus
     Dosage: TAKES ONE TAB AT BREAKFAST, ONE TAB AT LUNCH + ONE TAB AT DINNER
     Route: 048

REACTIONS (5)
  - Gastrointestinal microorganism overgrowth [Not Recovered/Not Resolved]
  - Gait disturbance [Not Recovered/Not Resolved]
  - Spinal osteoarthritis [Unknown]
  - Nerve injury [Unknown]
  - Arthropathy [Unknown]

NARRATIVE: CASE EVENT DATE: 20231227
